FAERS Safety Report 14939496 (Version 3)
Quarter: 2018Q2

REPORT INFORMATION
  Report Type: Spontaneous
  Country: US (occurrence: US)
  Receive Date: 20180525
  Receipt Date: 20180614
  Transmission Date: 20180711
  Serious: Yes (Other)
  Sender: FDA-Public Use
  Company Number: US-AMGEN-USASP2018068983

PATIENT
  Age: 55 Year
  Sex: Female

DRUGS (2)
  1. PARSABIV [Suspect]
     Active Substance: ETELCALCETIDE HYDROCHLORIDE
     Indication: HYPERPARATHYROIDISM SECONDARY
     Dosage: 2.5 MG, 3 TIMES/WK
     Route: 065
     Dates: start: 20180307
  2. PARSABIV [Suspect]
     Active Substance: ETELCALCETIDE HYDROCHLORIDE
     Dosage: 5 MG, UNK
     Route: 065
     Dates: start: 20180328

REACTIONS (4)
  - Subcutaneous emphysema [Unknown]
  - Underdose [Unknown]
  - Pleural effusion [Not Recovered/Not Resolved]
  - Tetany [Not Recovered/Not Resolved]

NARRATIVE: CASE EVENT DATE: 20180307
